FAERS Safety Report 16592324 (Version 2)
Quarter: 2019Q3

REPORT INFORMATION
  Report Type: Spontaneous
  Country: GB (occurrence: GB)
  Receive Date: 20190718
  Receipt Date: 20190903
  Transmission Date: 20191004
  Serious: Yes (Death)
  Sender: FDA-Public Use
  Company Number: GB-MYLANLABS-2019M1067492

PATIENT
  Age: 46 Year
  Sex: Male

DRUGS (4)
  1. FOLIC ACID. [Concomitant]
     Active Substance: FOLIC ACID
     Dosage: 05 MILLIGRAM, QD
     Route: 048
  2. SALBUTAMOL [Concomitant]
     Active Substance: ALBUTEROL
     Dosage: 100 MICROGRAM, INHALER PUFFS PRN
  3. CLOZARIL [Suspect]
     Active Substance: CLOZAPINE
     Indication: TREATMENT NONCOMPLIANCE
     Dosage: 300 UNK
     Route: 048
  4. CLOZARIL [Suspect]
     Active Substance: CLOZAPINE
     Indication: SCHIZOPHRENIA
     Dosage: UNK UNK, QD
     Route: 048
     Dates: start: 20161020

REACTIONS (1)
  - Cardiac disorder [Fatal]
